FAERS Safety Report 16132319 (Version 3)
Quarter: 2020Q2

REPORT INFORMATION
  Report Type: Report from Study
  Country: ES (occurrence: ES)
  Receive Date: 20190329
  Receipt Date: 20200519
  Transmission Date: 20200713
  Serious: Yes (Death, Hospitalization)
  Sender: FDA-Public Use
  Company Number: ES-BRISTOL-MYERS SQUIBB COMPANY-BMS-2019-029373

PATIENT
  Age: 43 Year
  Sex: Male
  Weight: 61.5 kg

DRUGS (4)
  1. SUNITINIB MALATE. [Suspect]
     Active Substance: SUNITINIB MALATE
     Indication: PRODUCT USED FOR UNKNOWN INDICATION
     Dosage: 37.5 MILLIGRAM
     Route: 048
     Dates: start: 20180705, end: 20190312
  2. NIVOLUMAB [Suspect]
     Active Substance: NIVOLUMAB
     Indication: CHONDROSARCOMA
     Dosage: 3 MILLIGRAM/KILOGRAM, Q2WK
     Route: 042
     Dates: start: 20180607, end: 20190227
  3. SUNITINIB MALATE. [Suspect]
     Active Substance: SUNITINIB MALATE
     Indication: CHONDROSARCOMA
     Dosage: 37.5 MILLIGRAM, QD
     Route: 048
     Dates: start: 20180523, end: 20180606
  4. SUNITINIB MALATE. [Suspect]
     Active Substance: SUNITINIB MALATE
     Indication: PRODUCT USED FOR UNKNOWN INDICATION
     Dosage: 25 MILLIGRAM
     Route: 048
     Dates: start: 20180607, end: 20180704

REACTIONS (1)
  - Discomfort [Fatal]

NARRATIVE: CASE EVENT DATE: 20190312
